FAERS Safety Report 8358566-5 (Version None)
Quarter: 2012Q2

REPORT INFORMATION
  Report Type: 
  Country: None (occurrence: None)
  Receive Date: 20120514
  Receipt Date: 20120508
  Transmission Date: 20120825
  Serious: Yes (Death)
  Sender: FDA-Public Use
  Company Number: US-BAYER-2012-045938

PATIENT
  Age: 36 Year
  Sex: Female

DRUGS (4)
  1. YAZ [Suspect]
     Dosage: UNK
     Dates: start: 20090101, end: 20100101
  2. METRONIDAZOLE [Concomitant]
     Dosage: 0.75 %, UNK
  3. CIPROFLOXACIN [Concomitant]
     Dosage: 500 MG, UNK
  4. DROSPIRENONE AND ETHINYL ESTRADIOL [Suspect]
     Dosage: UNK
     Dates: start: 20100701, end: 20110101

REACTIONS (1)
  - PULMONARY EMBOLISM [None]
